FAERS Safety Report 5828543-4 (Version None)
Quarter: 2008Q3

REPORT INFORMATION
  Report Type: 
  Country: None (occurrence: None)
  Receive Date: 20080729
  Receipt Date: 20080729
  Transmission Date: 20090109
  Serious: Yes (Other)
  Sender: FDA-Public Use
  Company Number: None

PATIENT
  Age: 48 Year
  Sex: Female
  Weight: 65.7716 kg

DRUGS (1)
  1. CARAC [Suspect]
     Indication: SKIN CANCER
     Dosage: ONCE DAILY
     Dates: start: 20080606, end: 20080701

REACTIONS (2)
  - ACNE [None]
  - PRURITUS [None]
